FAERS Safety Report 20140239 (Version 1)
Quarter: 2021Q4

REPORT INFORMATION
  Report Type: Spontaneous
  Country: US (occurrence: None)
  Receive Date: 20211202
  Receipt Date: 20211202
  Transmission Date: 20220303
  Serious: Yes (Death, Hospitalization)
  Sender: FDA-Public Use
  Company Number: None

PATIENT
  Age: 77 Year
  Sex: Female
  Weight: 85.2 kg

DRUGS (4)
  1. DARATUMUMAB\HYALURONIDASE-FIHJ [Suspect]
     Active Substance: DARATUMUMAB\HYALURONIDASE-FIHJ
     Dates: end: 20211112
  2. DARATUMUMAB\HYALURONIDASE-FIHJ [Suspect]
     Active Substance: DARATUMUMAB\HYALURONIDASE-FIHJ
  3. DEXAMETHASONE [Suspect]
     Active Substance: DEXAMETHASONE
     Dates: end: 20211112
  4. LENALIDOMIDE [Suspect]
     Active Substance: LENALIDOMIDE
     Dates: end: 20211115

REACTIONS (17)
  - COVID-19 pneumonia [None]
  - Fall [None]
  - International normalised ratio increased [None]
  - Pulmonary oedema [None]
  - Pleural effusion [None]
  - Superinfection [None]
  - Inflammatory marker increased [None]
  - Procalcitonin increased [None]
  - Cytokine release syndrome [None]
  - Acute respiratory failure [None]
  - Unresponsive to stimuli [None]
  - Pupil fixed [None]
  - Breath sounds absent [None]
  - Pulse absent [None]
  - Malnutrition [None]
  - Pneumomediastinum [None]
  - Subcutaneous emphysema [None]

NARRATIVE: CASE EVENT DATE: 20211118
